FAERS Safety Report 5082232-5 (Version None)
Quarter: 2006Q3

REPORT INFORMATION
  Report Type: 
  Country: None (occurrence: None)
  Receive Date: 20060815
  Receipt Date: 20060815
  Transmission Date: 20061208
  Serious: Yes (Other)
  Sender: FDA-Public Use
  Company Number: None

PATIENT
  Sex: Female

DRUGS (2)
  1. ESTRADIOL [Suspect]
     Indication: MENOPAUSAL SYMPTOMS
     Dosage: 0.05MG/DAY  CHANGE ONCE WEEKLY   TRANSDERMAL
     Route: 062
     Dates: start: 20060804, end: 20060814
  2. ESTRADIOL [Suspect]
     Indication: OOPHORECTOMY
     Dosage: 0.05MG/DAY  CHANGE ONCE WEEKLY   TRANSDERMAL
     Route: 062
     Dates: start: 20060804, end: 20060814

REACTIONS (5)
  - DRUG EFFECT DECREASED [None]
  - HEADACHE [None]
  - HOT FLUSH [None]
  - MENTAL DISORDER [None]
  - PHARMACEUTICAL PRODUCT COMPLAINT [None]
